FAERS Safety Report 9887761 (Version 1)
Quarter: 2014Q1

REPORT INFORMATION
  Report Type: Spontaneous
  Country: US (occurrence: US)
  Receive Date: 20140211
  Receipt Date: 20140211
  Transmission Date: 20141002
  Serious: No
  Sender: FDA-Public Use
  Company Number: US-B.I. PHARMACEUTICALS,INC./RIDGEFIELD-2014-BI-05615BP

PATIENT
  Sex: 0

DRUGS (3)
  1. COMBIVENT [Suspect]
     Indication: PRODUCT USED FOR UNKNOWN INDICATION
     Dosage: STRENGTH: 20 MCG / 100 MCG
  2. COMBIVENT [Suspect]
     Dosage: 8 PUF
     Route: 055
  3. COMBIVENT INHALATION AEROSOL [Concomitant]
     Dosage: DOSE PER APPLICATION: 18 MCG / 103 MCG
     Route: 055

REACTIONS (2)
  - Overdose [Unknown]
  - Drug ineffective [Unknown]
